FAERS Safety Report 13650314 (Version 1)
Quarter: 2017Q2

REPORT INFORMATION
  Report Type: Spontaneous
  Country: JP (occurrence: JP)
  Receive Date: 20170614
  Receipt Date: 20170614
  Transmission Date: 20170830
  Serious: Yes (Hospitalization, Other)
  Sender: FDA-Public Use
  Company Number: PHJP2017JP018817

PATIENT
  Age: 77 Year
  Sex: Male
  Weight: 60 kg

DRUGS (2)
  1. NEORAL [Suspect]
     Active Substance: CYCLOSPORINE
     Indication: PUSTULAR PSORIASIS
     Dosage: 150 MG, QD
     Route: 048
     Dates: start: 20170512, end: 20170518
  2. NEORAL [Suspect]
     Active Substance: CYCLOSPORINE
     Dosage: 180 MG, QD
     Route: 048
     Dates: start: 20170519

REACTIONS (8)
  - Drug effect incomplete [Unknown]
  - Pyrexia [Unknown]
  - Dementia [Unknown]
  - Subarachnoid haemorrhage [Unknown]
  - Rash [Not Recovered/Not Resolved]
  - Psoriasis [Unknown]
  - Fall [Unknown]
  - Dizziness [Unknown]

NARRATIVE: CASE EVENT DATE: 20170519
